FAERS Safety Report 21625547 (Version 1)
Quarter: 2022Q4

REPORT INFORMATION
  Report Type: Spontaneous
  Country: GB (occurrence: GB)
  Receive Date: 20221122
  Receipt Date: 20221122
  Transmission Date: 20230113
  Serious: Yes (Disabling, Other)
  Sender: FDA-Public Use
  Company Number: None

PATIENT
  Sex: Female
  Weight: 32 kg

DRUGS (1)
  1. BETAMETHASONE DIPROPIONATE [Suspect]
     Active Substance: BETAMETHASONE DIPROPIONATE
     Indication: Dermatitis atopic
     Dosage: TWICE A DAY
     Dates: start: 20220527, end: 20220602

REACTIONS (1)
  - Topical steroid withdrawal reaction [Recovering/Resolving]

NARRATIVE: CASE EVENT DATE: 20220602
